FAERS Safety Report 4316060-2 (Version None)
Quarter: 2004Q1

REPORT INFORMATION
  Report Type: 
  Country: None (occurrence: None)
  Receive Date: 20040310
  Receipt Date: 20040301
  Transmission Date: 20041129
  Serious: Yes (Hospitalization)
  Sender: FDA-Public Use
  Company Number: FRWYE310223SEP03

PATIENT
  Age: 48 Year
  Sex: Male

DRUGS (12)
  1. RAPAMUNE [Suspect]
     Indication: PROPHYLAXIS AGAINST TRANSPLANT REJECTION
     Dosage: 15 MG 1X PER 1 DAY ORAL; SEE IMAGE
     Route: 048
     Dates: start: 20030701, end: 20030702
  2. RAPAMUNE [Suspect]
     Indication: PROPHYLAXIS AGAINST TRANSPLANT REJECTION
     Dosage: 15 MG 1X PER 1 DAY ORAL; SEE IMAGE
     Route: 048
     Dates: start: 20030703, end: 20030718
  3. RAPAMUNE [Suspect]
     Indication: PROPHYLAXIS AGAINST TRANSPLANT REJECTION
     Dosage: 15 MG 1X PER 1 DAY ORAL; SEE IMAGE
     Route: 048
     Dates: start: 20030719
  4. CELLCEPT [Suspect]
     Dosage: 1.5 G 1X PER 1 DAY ORAL
     Route: 048
     Dates: start: 20030702
  5. PREDNISONE [Suspect]
     Indication: PROPHYLAXIS AGAINST TRANSPLANT REJECTION
     Dosage: 12 MG 1X PER 1 DAY ORAL
     Route: 048
     Dates: start: 20030729, end: 20030912
  6. LOPRESSOR [Concomitant]
  7. ONE-ALPHA (ALFACALCIDOL) [Concomitant]
  8. RAMIPRIL [Concomitant]
  9. TAHOR (ATORVASTATIN) [Concomitant]
  10. SPIRONOLACTONE [Concomitant]
  11. EFFERALGAN CODEINE (PARACETAMOL/CODEINE PHOSPHATE) [Concomitant]
  12. LEVOTHYROXINE SODIUM [Concomitant]

REACTIONS (7)
  - ARTHRALGIA [None]
  - CONTUSION [None]
  - OEDEMA PERIPHERAL [None]
  - OSTEOMALACIA [None]
  - OSTEONECROSIS [None]
  - SKELETAL INJURY [None]
  - TENDON DISORDER [None]
